FAERS Safety Report 22001742 (Version 1)
Quarter: 2023Q1

REPORT INFORMATION
  Report Type: Report from Study
  Country: CA (occurrence: CA)
  Receive Date: 20230216
  Receipt Date: 20230216
  Transmission Date: 20230418
  Serious: Yes (Other)
  Sender: FDA-Public Use
  Company Number: CA-BAUSCH-BL-2023-002566

PATIENT
  Age: 45 Year
  Sex: Male

DRUGS (3)
  1. SILIQ [Suspect]
     Active Substance: BRODALUMAB
     Indication: Psoriasis
     Dosage: 210/1.5 MG, INDUCTION WEEKLY, WEEK 0: 06-APR-2021, WEEK 1: 13-APR-2021, WEEK 2: 20-APR-2021
     Route: 058
     Dates: start: 20210406, end: 20210420
  2. SILIQ [Suspect]
     Active Substance: BRODALUMAB
     Dosage: 210/1.5 MG, Q2 WEEKS
     Route: 058
  3. ENBREL [Concomitant]
     Active Substance: ETANERCEPT
     Indication: Product used for unknown indication

REACTIONS (2)
  - Surgery [Unknown]
  - Intentional dose omission [Unknown]
